FAERS Safety Report 5083265-5 (Version None)
Quarter: 2006Q3

REPORT INFORMATION
  Report Type: 
  Country: None (occurrence: None)
  Receive Date: 20060816
  Receipt Date: 20060816
  Transmission Date: 20061208
  Serious: Yes (Hospitalization, Disabling)
  Sender: FDA-Public Use
  Company Number: None

PATIENT
  Age: 46 Year
  Sex: Male

DRUGS (12)
  1. LEVOFLOXACIN [Suspect]
     Indication: CARDIAC FAILURE CONGESTIVE
     Dates: start: 20051103
  2. LEVOFLOXACIN [Suspect]
     Indication: CONDITION AGGRAVATED
     Dates: start: 20051103
  3. LEVOFLOXACIN [Suspect]
     Indication: SCROTAL OEDEMA
     Dates: start: 20051103
  4. HUMULIN 70/30 [Concomitant]
  5. DIGOXIN [Concomitant]
  6. FUROSEMIDE [Concomitant]
  7. ASPIRIN [Concomitant]
  8. ESOMEPRAZOLE MAGNESIUM [Concomitant]
  9. METOPROLOL TARTRATE [Concomitant]
  10. MORPHINE [Concomitant]
  11. VANCOMYCIN [Concomitant]
  12. CEFEPIME [Concomitant]

REACTIONS (3)
  - RASH [None]
  - SCROTAL ABSCESS [None]
  - SCROTAL OPERATION [None]
